FAERS Safety Report 10754088 (Version 1)
Quarter: 2015Q1

REPORT INFORMATION
  Report Type: Report from Study
  Country: CN (occurrence: CN)
  Receive Date: 20150202
  Receipt Date: 20150202
  Transmission Date: 20150721
  Serious: Yes (Death)
  Sender: FDA-Public Use
  Company Number: CN-ROCHE-1530351

PATIENT
  Sex: Female
  Weight: 48 kg

DRUGS (1)
  1. AVASTIN [Suspect]
     Active Substance: BEVACIZUMAB
     Indication: RECTAL CANCER
     Route: 042
     Dates: start: 20130312

REACTIONS (2)
  - Drug ineffective [Fatal]
  - Disease progression [Fatal]
